FAERS Safety Report 9769123 (Version 1)
Quarter: 2013Q4

REPORT INFORMATION
  Report Type: Spontaneous
  Country: ES (occurrence: ES)
  Receive Date: 20131218
  Receipt Date: 20131218
  Transmission Date: 20140711
  Serious: Yes (Hospitalization)
  Sender: FDA-Public Use
  Company Number: 2012SP000296

PATIENT
  Age: 71 Year
  Sex: Female

DRUGS (3)
  1. MEROPENEM [Suspect]
     Indication: RESPIRATORY TRACT INFECTION
     Route: 042
     Dates: start: 20120302, end: 20120307
  2. VANCOMYCIN [Suspect]
     Indication: ESCHERICHIA SEPSIS
     Route: 042
     Dates: start: 20120306, end: 20120320
  3. AUGMENTIN /00756801/ [Suspect]
     Indication: RESPIRATORY TRACT INFECTION
     Route: 042
     Dates: start: 20120311, end: 20120316

REACTIONS (1)
  - Pseudomembranous colitis [Unknown]
